FAERS Safety Report 5497400-8 (Version None)
Quarter: 2007Q4

REPORT INFORMATION
  Report Type: 
  Country: None (occurrence: None)
  Receive Date: 20071025
  Receipt Date: 20070312
  Transmission Date: 20080405
  Serious: No
  Sender: FDA-Public Use
  Company Number: US-BRISTOL-MYERS SQUIBB COMPANY-13709662

PATIENT
  Age: 71 Year

DRUGS (3)
  1. METFORMIN HCL [Suspect]
  2. GLIPIZIDE [Suspect]
  3. NOVOLIN 70/30 [Suspect]
     Dosage: 80 UNITS IN AM AND 60 UNITS IN PM

REACTIONS (2)
  - DRUG INEFFECTIVE [None]
  - GLYCOSYLATED HAEMOGLOBIN INCREASED [None]
